FAERS Safety Report 9305983 (Version 1)
Quarter: 2013Q2

REPORT INFORMATION
  Report Type: Spontaneous
  Country: AU (occurrence: AU)
  Receive Date: 20130523
  Receipt Date: 20130523
  Transmission Date: 20140414
  Serious: Yes (Hospitalization, Other)
  Sender: FDA-Public Use
  Company Number: AU-MYLANLABS-2013S1010501

PATIENT
  Age: 59 Year
  Sex: Male

DRUGS (1)
  1. FENDEX ER [Suspect]
     Indication: BLOOD PRESSURE
     Route: 048
     Dates: start: 20130426, end: 20130510

REACTIONS (2)
  - Anaphylactic reaction [Unknown]
  - Product substitution issue [Unknown]
